FAERS Safety Report 24970679 (Version 2)
Quarter: 2025Q2

REPORT INFORMATION
  Report Type: Spontaneous
  Country: DE (occurrence: None)
  Receive Date: 20250214
  Receipt Date: 20250515
  Transmission Date: 20250716
  Serious: Yes (Other)
  Sender: INCYTE
  Company Number: DE-INCYTE CORPORATION-2025IN001525

PATIENT
  Age: 87 Year

DRUGS (3)
  1. TAFASITAMAB [Suspect]
     Active Substance: TAFASITAMAB
     Indication: Diffuse large B-cell lymphoma
     Route: 065
  2. LENALIDOMIDE [Suspect]
     Active Substance: LENALIDOMIDE
     Indication: Diffuse large B-cell lymphoma
     Route: 065
  3. GLOFITAMAB [Suspect]
     Active Substance: GLOFITAMAB
     Indication: Product used for unknown indication
     Route: 065

REACTIONS (4)
  - Urinary retention [Unknown]
  - Cytokine release syndrome [Unknown]
  - Diffuse large B-cell lymphoma [Recovered/Resolved]
  - Disease progression [Recovered/Resolved]
